FAERS Safety Report 24317057 (Version 2)
Quarter: 2024Q4

REPORT INFORMATION
  Report Type: Spontaneous
  Country: DE (occurrence: DE)
  Receive Date: 20240913
  Receipt Date: 20241001
  Transmission Date: 20250114
  Serious: Yes (Other)
  Sender: SANOFI AVENTIS
  Company Number: DE-SANOFI-02214125

PATIENT
  Sex: Female

DRUGS (1)
  1. AUBAGIO [Suspect]
     Active Substance: TERIFLUNOMIDE
     Dosage: UNK
     Dates: start: 2020

REACTIONS (6)
  - Toxic shock syndrome streptococcal [Unknown]
  - Pneumonia [Unknown]
  - Chronic kidney disease [Unknown]
  - Device related thrombosis [Unknown]
  - Hepatic failure [Recovering/Resolving]
  - Polyneuropathy [Unknown]
